FAERS Safety Report 21232715 (Version 1)
Quarter: 2022Q3

REPORT INFORMATION
  Report Type: Spontaneous
  Country: US (occurrence: US)
  Receive Date: 20220819
  Receipt Date: 20220819
  Transmission Date: 20221026
  Serious: Yes (Other)
  Sender: FDA-Public Use
  Company Number: US-GLENMARK PHARMACEUTICALS-2022GMK074408

PATIENT

DRUGS (1)
  1. ZONISAMIDE [Suspect]
     Active Substance: ZONISAMIDE
     Indication: Product used for unknown indication
     Dosage: UNK
     Route: 065

REACTIONS (8)
  - Cardiac flutter [Unknown]
  - Gastric infection [Unknown]
  - Pain in extremity [Unknown]
  - Tic [Unknown]
  - Recalled product administered [Unknown]
  - Heart rate irregular [Unknown]
  - Tremor [Unknown]
  - Decreased appetite [Unknown]
